FAERS Safety Report 25660423 (Version 4)
Quarter: 2025Q3

REPORT INFORMATION
  Report Type: Spontaneous
  Country: US (occurrence: US)
  Receive Date: 20250808
  Receipt Date: 20250930
  Transmission Date: 20251021
  Serious: Yes (Other)
  Sender: PFIZER
  Company Number: US-PFIZER INC-202500119947

PATIENT

DRUGS (1)
  1. ZITHROMAX [Suspect]
     Active Substance: AZITHROMYCIN DIHYDRATE

REACTIONS (5)
  - Myocardial infarction [Unknown]
  - Haemoptysis [Unknown]
  - Cough [Unknown]
  - Throat irritation [Unknown]
  - Dyspepsia [Unknown]
